FAERS Safety Report 10477236 (Version 2)
Quarter: 2014Q3

REPORT INFORMATION
  Report Type: Spontaneous
  Country: US (occurrence: US)
  Receive Date: 20140926
  Receipt Date: 20140929
  Transmission Date: 20150326
  Serious: Yes (Other)
  Sender: FDA-Public Use
  Company Number: US-DRREDDYS-USA/USA/14/0043276

PATIENT
  Age: 17 Year
  Sex: Male

DRUGS (5)
  1. SINGULAIR [Concomitant]
     Active Substance: MONTELUKAST SODIUM
     Indication: PRODUCT USED FOR UNKNOWN INDICATION
     Route: 065
  2. FLOVENT [Concomitant]
     Active Substance: FLUTICASONE PROPIONATE
     Indication: PRODUCT USED FOR UNKNOWN INDICATION
     Route: 065
  3. PULMICORT TURBUHALER [Concomitant]
     Active Substance: BUDESONIDE
     Indication: PRODUCT USED FOR UNKNOWN INDICATION
     Route: 065
  4. ZENATANE [Suspect]
     Active Substance: ISOTRETINOIN
     Route: 065
     Dates: start: 20140912
  5. ZENATANE [Suspect]
     Active Substance: ISOTRETINOIN
     Indication: ACNE
     Route: 065
     Dates: start: 20140912, end: 20140921

REACTIONS (3)
  - Abnormal behaviour [Recovered/Resolved]
  - Mood altered [Recovered/Resolved]
  - Anger [Recovered/Resolved]

NARRATIVE: CASE EVENT DATE: 20140923
